FAERS Safety Report 5355168-X (Version None)
Quarter: 2007Q2

REPORT INFORMATION
  Report Type: 
  Country: None (occurrence: None)
  Receive Date: 20070611
  Receipt Date: 20070606
  Transmission Date: 20071010
  Serious: Yes (Other)
  Sender: FDA-Public Use
  Company Number: 2007SP006618

PATIENT
  Age: 47 Year
  Sex: Female
  Weight: 68.9467 kg

DRUGS (6)
  1. PEG-INTRON [Suspect]
     Indication: HEPATITIS C
     Dosage: SEE IMAGE
     Route: 058
     Dates: start: 20050324, end: 20050407
  2. PEG-INTRON [Suspect]
     Indication: HEPATITIS C
     Dosage: SEE IMAGE
     Route: 058
     Dates: start: 20070106
  3. RIBAVIRIN [Suspect]
     Indication: HEPATITIS C
     Dosage: SEE IMAGE
     Route: 048
     Dates: start: 20050324, end: 20050407
  4. RIBAVIRIN [Suspect]
     Indication: HEPATITIS C
     Dosage: SEE IMAGE
     Route: 048
     Dates: start: 20070106
  5. VITAMIN CAP [Concomitant]
  6. CALCIUM CHLORIDE [Concomitant]

REACTIONS (8)
  - ALOPECIA [None]
  - DRY EYE [None]
  - EYE IRRITATION [None]
  - EYE PRURITUS [None]
  - HAEMOGLOBIN DECREASED [None]
  - NEUTROPENIA [None]
  - TUMOUR MARKER INCREASED [None]
  - WEIGHT DECREASED [None]
